FAERS Safety Report 8374307-X (Version None)
Quarter: 2012Q2

REPORT INFORMATION
  Report Type: 
  Country: None (occurrence: None)
  Receive Date: 20120521
  Receipt Date: 20120514
  Transmission Date: 20120825
  Serious: Yes (Other)
  Sender: FDA-Public Use
  Company Number: PHEH2012US010110

PATIENT
  Sex: Male

DRUGS (7)
  1. ARCAPTA [Suspect]
     Dosage: 75 UG, QD
  2. METOPROLOL [Concomitant]
     Dosage: 50 MG, BID
  3. GABAPENTIN [Concomitant]
     Dosage: 100 MG, TID
  4. ASCORBIC ACID [Concomitant]
  5. ALBUTEROL SULFATE [Concomitant]
  6. ASPIRIN [Concomitant]
     Dosage: 325 MG, UNK
  7. LIPITOR [Concomitant]
     Dosage: 40 MG, QD

REACTIONS (7)
  - DYSPNOEA [None]
  - HEART RATE DECREASED [None]
  - EXTRASYSTOLES [None]
  - BLOOD PRESSURE INCREASED [None]
  - ARRHYTHMIA [None]
  - CHEST DISCOMFORT [None]
  - HEAD DISCOMFORT [None]
